FAERS Safety Report 6983849-0 (Version None)
Quarter: 2010Q3

REPORT INFORMATION
  Report Type: 
  Country: None (occurrence: None)
  Receive Date: 20100914
  Receipt Date: 20090324
  Transmission Date: 20110219
  Serious: No
  Sender: FDA-Public Use
  Company Number: US-WYE-H08702609

PATIENT
  Age: 56 Year
  Sex: Female
  Weight: 130.3 kg

DRUGS (4)
  1. ADVIL PM [Suspect]
     Indication: BACK PAIN
     Dosage: 2 CAPLETS X 2
     Route: 048
     Dates: start: 20090321, end: 20090322
  2. ADVIL PM [Suspect]
     Indication: INSOMNIA
  3. NORVASC [Concomitant]
  4. LIPITOR [Concomitant]

REACTIONS (1)
  - EYE IRRITATION [None]
